FAERS Safety Report 5023222-8 (Version None)
Quarter: 2006Q2

REPORT INFORMATION
  Report Type: 
  Country: None (occurrence: None)
  Receive Date: 20060428
  Receipt Date: 20060123
  Transmission Date: 20061013
  Serious: No
  Sender: FDA-Public Use
  Company Number: 012013

PATIENT
  Age: 64 Year
  Sex: Male

DRUGS (12)
  1. PRIALT [Suspect]
     Indication: PAIN
     Dosage: SEE IMAGE
     Route: 037
     Dates: start: 20050801, end: 20050801
  2. PRIALT [Suspect]
     Indication: PAIN
     Dosage: SEE IMAGE
     Route: 037
     Dates: start: 20050817, end: 20050801
  3. PRIALT [Suspect]
     Indication: PAIN
     Dosage: SEE IMAGE
     Route: 037
     Dates: start: 20050811, end: 20050817
  4. PRIALT [Suspect]
     Indication: PAIN
     Dosage: SEE IMAGE
     Route: 037
     Dates: start: 20050819, end: 20051011
  5. PRIALT [Suspect]
     Indication: PAIN
     Dosage: SEE IMAGE
     Route: 037
     Dates: start: 20050927, end: 20051011
  6. PRIALT [Suspect]
     Indication: PAIN
     Dosage: SEE IMAGE
     Route: 037
     Dates: start: 20051011, end: 20051018
  7. PRIALT [Suspect]
     Indication: PAIN
     Dosage: SEE IMAGE
     Route: 037
     Dates: start: 20051018
  8. FENTANYL [Concomitant]
  9. MORPHINE [Concomitant]
  10. CLONIDINE [Concomitant]
  11. HYTRIN [Concomitant]
  12. MORPHINE [Concomitant]

REACTIONS (8)
  - ARTHRALGIA [None]
  - BACK INJURY [None]
  - BACK PAIN [None]
  - BALANCE DISORDER [None]
  - FALL [None]
  - FATIGUE [None]
  - LIMB INJURY [None]
  - PAIN [None]
